FAERS Safety Report 7690686-0 (Version None)
Quarter: 2011Q3

REPORT INFORMATION
  Report Type: 
  Country: None (occurrence: None)
  Receive Date: 20110818
  Receipt Date: 20110808
  Transmission Date: 20111222
  Serious: Yes (Other)
  Sender: FDA-Public Use
  Company Number: JP-BRISTOL-MYERS SQUIBB COMPANY-15978729

PATIENT
  Age: 5 Year
  Sex: Female

DRUGS (2)
  1. CARBOPLATIN [Suspect]
     Indication: NONGERMINOMATOUS GERM CELL TUMOUR OF THE CNS
  2. ETOPOSIDE [Suspect]
     Indication: NONGERMINOMATOUS GERM CELL TUMOUR OF THE CNS

REACTIONS (3)
  - THROMBOCYTOPENIA [None]
  - HAEMANGIOMA [None]
  - LEUKOPENIA [None]
